FAERS Safety Report 5999094-1 (Version None)
Quarter: 2008Q4

REPORT INFORMATION
  Report Type: 
  Country: None (occurrence: None)
  Receive Date: 20081211
  Receipt Date: 20081126
  Transmission Date: 20090506
  Serious: Yes (Other)
  Sender: FDA-Public Use
  Company Number: ALL1-2008-03430

PATIENT
  Age: 5 Year
  Sex: Female
  Weight: 20.9 kg

DRUGS (6)
  1. DAYTRANA [Suspect]
     Indication: ATTENTION DEFICIT/HYPERACTIVITY DISORDER
     Dosage: 10 MG, 1X/DAY;QD, TRANSDERMAL
     Route: 062
     Dates: start: 20080801
  2. SINGULAIR [Concomitant]
  3. PULMICORT [Concomitant]
  4. ZOVINOX [Concomitant]
  5. CLARITIN [Concomitant]
  6. UNKNOWN INHALER [Concomitant]

REACTIONS (6)
  - DRUG INEFFECTIVE [None]
  - EAR INFECTION [None]
  - INSOMNIA [None]
  - OFF LABEL USE [None]
  - PNEUMONIA [None]
  - PRODUCT QUALITY ISSUE [None]
